FAERS Safety Report 11917522 (Version 1)
Quarter: 2016Q1

REPORT INFORMATION
  Report Type: Other
  Country: GB (occurrence: GB)
  Receive Date: 20160114
  Receipt Date: 20160114
  Transmission Date: 20160526
  Serious: Yes (Other)
  Sender: FDA-Public Use
  Company Number: GB-WARNER CHILCOTT, LLC-1046502

PATIENT
  Age: 62 Year
  Sex: Female
  Weight: 47.73 kg

DRUGS (1)
  1. ACTONEL [Suspect]
     Active Substance: RISEDRONATE SODIUM
     Indication: OSTEOPOROSIS
     Route: 048
     Dates: start: 20151104, end: 20151104

REACTIONS (6)
  - Hyperhidrosis [Unknown]
  - Nausea [Unknown]
  - Presyncope [None]
  - Dizziness [Unknown]
  - Hypotension [None]
  - Tremor [Unknown]
